FAERS Safety Report 9333836 (Version 1)
Quarter: 2013Q2

REPORT INFORMATION
  Report Type: Spontaneous
  Country: US (occurrence: US)
  Receive Date: 20130606
  Receipt Date: 20130606
  Transmission Date: 20140414
  Serious: No
  Sender: FDA-Public Use
  Company Number: US-AMGEN-USASP2013008552

PATIENT
  Age: 66 Year
  Sex: Male
  Weight: 123.81 kg

DRUGS (2)
  1. PROLIA [Suspect]
     Indication: PROSTATE CANCER
     Dosage: 60 MG, Q6MO
     Dates: start: 20130131, end: 20130204
  2. LUPRON [Concomitant]
     Indication: PROSTATE CANCER
     Dosage: UNK UNK, Q6MO
     Route: 030
     Dates: start: 20120726

REACTIONS (1)
  - Rash generalised [Recovering/Resolving]
